FAERS Safety Report 13473884 (Version 1)
Quarter: 2017Q2

REPORT INFORMATION
  Report Type: Spontaneous
  Country: JP (occurrence: JP)
  Receive Date: 20170424
  Receipt Date: 20170424
  Transmission Date: 20170830
  Serious: Yes (Hospitalization)
  Sender: FDA-Public Use
  Company Number: JP-BIOCRYST PHARMACEUTICALS, INC.-2017BCR00069

PATIENT
  Age: 53 Year
  Sex: Male

DRUGS (9)
  1. RECOMODULIN [Concomitant]
     Active Substance: THROMBOMODULIN ALFA
     Indication: SEPTIC SHOCK
     Dosage: 12800 IU, 1X/DAY
     Route: 042
     Dates: start: 20170207, end: 20170209
  2. MEROPENEM. [Concomitant]
     Active Substance: MEROPENEM
     Indication: SEPTIC SHOCK
     Dosage: 2 G, 1X/DAY
     Route: 042
     Dates: start: 20170207, end: 20170211
  3. NOREPINEPHRINE. [Concomitant]
     Active Substance: NOREPINEPHRINE
     Indication: SEPTIC SHOCK
     Dosage: UNK
     Route: 042
     Dates: start: 20170211, end: 20170211
  4. SOLU-MEDROL [Concomitant]
     Active Substance: METHYLPREDNISOLONE SODIUM SUCCINATE
     Indication: ACUTE RESPIRATORY DISTRESS SYNDROME
     Dosage: 1000 MG, 1X/DAY
     Route: 042
     Dates: start: 20170207, end: 20170209
  5. FENTANYL. [Concomitant]
     Active Substance: FENTANYL
     Indication: SEDATIVE THERAPY
     Dosage: UNK
     Route: 042
     Dates: start: 20170207, end: 20170209
  6. RAPIACTA [Suspect]
     Active Substance: PERAMIVIR
     Indication: PNEUMONIA INFLUENZAL
     Dosage: 100 MG, UNK
     Route: 042
     Dates: start: 20170207, end: 20170211
  7. MIDAZOLAM [Concomitant]
     Active Substance: MIDAZOLAM HYDROCHLORIDE
     Indication: SEDATIVE THERAPY
     Dosage: UNK
     Route: 042
     Dates: start: 20170207, end: 20170209
  8. SOLDEM 1 [Concomitant]
     Active Substance: DEXTROSE\SODIUM CHLORIDE\SODIUM LACTATE
     Indication: NUTRITIONAL SUPPLEMENTATION
     Dosage: 500 ML, 1X/DAY
     Dates: start: 20170207, end: 20170207
  9. BFLUID [Concomitant]
     Active Substance: AMINO ACIDS\DEXTROSE\ELECTROLYTES NOS\VITAMINS
     Indication: NUTRITIONAL SUPPLEMENTATION
     Dosage: 500 ML, 1X/DAY
     Route: 042
     Dates: start: 20170208, end: 20170210

REACTIONS (1)
  - Encephalopathy [Recovered/Resolved]

NARRATIVE: CASE EVENT DATE: 20170211
